FAERS Safety Report 19953424 (Version 3)
Quarter: 2021Q4

REPORT INFORMATION
  Report Type: Spontaneous
  Country: US (occurrence: US)
  Receive Date: 20211013
  Receipt Date: 20211022
  Transmission Date: 20220303
  Serious: Yes (Death)
  Sender: FDA-Public Use
  Company Number: US-CELGENE-USA-20211002764

PATIENT
  Sex: Female
  Weight: 96.7 kg

DRUGS (1)
  1. REVLIMID [Suspect]
     Active Substance: LENALIDOMIDE
     Indication: Myelodysplastic syndrome
     Dosage: 5 MILLIGRAM
     Route: 048
     Dates: start: 20210913

REACTIONS (2)
  - Myelodysplastic syndrome [Fatal]
  - Renal failure [Fatal]

NARRATIVE: CASE EVENT DATE: 20210101
